FAERS Safety Report 7507158-6 (Version None)
Quarter: 2011Q2

REPORT INFORMATION
  Report Type: 
  Country: None (occurrence: None)
  Receive Date: 20110526
  Receipt Date: 20080220
  Transmission Date: 20111010
  Serious: Yes (Other)
  Sender: FDA-Public Use
  Company Number: US-BAYER-201040362NA

PATIENT
  Age: 74 Year
  Sex: Female
  Weight: 68 kg

DRUGS (17)
  1. TRASYLOL [Suspect]
     Indication: MITRAL VALVE REPLACEMENT
     Dosage: NO TEST DOSE, 200ML CARDIOPULMONARY BYPASS PRIME LOADING DOSE: 50ML/HR INFUSION
     Route: 042
     Dates: start: 20040324, end: 20040324
  2. PLASMA [Concomitant]
     Dosage: UNK
     Dates: start: 20040324
  3. PROTAMINE SULFATE [Concomitant]
     Dosage: 50MG
     Route: 042
     Dates: start: 20040324, end: 20040324
  4. RED BLOOD CELLS [Concomitant]
     Dosage: UNK
     Dates: start: 20040324
  5. CARVEDILOL [Concomitant]
     Dosage: 30MG
     Route: 048
  6. DILTIAZEM [Concomitant]
     Dosage: 180MG
     Route: 048
  7. MILRINONE [Concomitant]
     Dosage: 10MG
     Route: 042
     Dates: start: 20040324, end: 20040324
  8. HEPARIN [Concomitant]
     Dosage: 10000
     Route: 042
     Dates: start: 20040324, end: 20040324
  9. FENTANYL [Concomitant]
     Dosage: 1000 MCG
     Route: 042
     Dates: start: 20040324, end: 20040324
  10. FAMOTIDINE [Concomitant]
     Dosage: 10MG
     Route: 042
     Dates: start: 20040324, end: 20040324
  11. PLATELETS [Concomitant]
     Dosage: UNK
     Dates: start: 20040324
  12. LASIX [Concomitant]
     Dosage: 40MG
     Route: 048
  13. MORPHINE [Concomitant]
     Dosage: 8MG
     Route: 042
     Dates: start: 20040324, end: 20040324
  14. WARFARIN SODIUM [Concomitant]
     Dosage: 7.5MG
     Route: 048
  15. LOTENSIN [Concomitant]
     Dosage: 20MG
     Route: 048
  16. ALBUMIN (HUMAN) [Concomitant]
     Dosage: 250ML
     Dates: start: 20040324, end: 20040324
  17. MANNITOL [Concomitant]
     Dosage: 25GRAMS
     Dates: start: 20040324, end: 20040324

REACTIONS (7)
  - ANXIETY [None]
  - FEAR [None]
  - RENAL FAILURE [None]
  - PAIN [None]
  - DEPRESSION [None]
  - INJURY [None]
  - UNEVALUABLE EVENT [None]
